FAERS Safety Report 8464664-8 (Version None)
Quarter: 2012Q2

REPORT INFORMATION
  Report Type: 
  Country: None (occurrence: None)
  Receive Date: 20120626
  Receipt Date: 20120615
  Transmission Date: 20120825
  Serious: Yes (Hospitalization)
  Sender: FDA-Public Use
  Company Number: US-JNJFOC-20120608395

PATIENT
  Sex: Female
  Weight: 99.79 kg

DRUGS (8)
  1. DURAGESIC-100 [Suspect]
     Route: 062
     Dates: start: 20120401
  2. DURAGESIC-100 [Suspect]
     Indication: PAIN
     Route: 062
  3. UNKNOWN MEDICATION [Concomitant]
     Indication: DEPRESSION
     Route: 065
  4. DURAGESIC-100 [Suspect]
     Dosage: 100 UG/HR AND 25 UG/HR
     Route: 062
     Dates: end: 20120401
  5. ASPIRIN [Concomitant]
     Indication: CARDIOVASCULAR DISORDER
     Route: 048
     Dates: start: 20000101
  6. NEXIUM [Concomitant]
     Indication: GASTRIC DISORDER
     Route: 048
     Dates: start: 20030101
  7. OXYCODONE HCL [Concomitant]
     Indication: BREAKTHROUGH PAIN
     Route: 048
  8. PLAVIX [Concomitant]
     Indication: ANTICOAGULANT THERAPY
     Route: 048
     Dates: start: 20000101

REACTIONS (7)
  - TREMOR [None]
  - PAIN [None]
  - CHEST PAIN [None]
  - DRUG EFFECT DECREASED [None]
  - DEVICE OCCLUSION [None]
  - WEIGHT INCREASED [None]
  - PRODUCT QUALITY ISSUE [None]
